FAERS Safety Report 25275230 (Version 1)
Quarter: 2025Q2

REPORT INFORMATION
  Report Type: Spontaneous
  Country: HR (occurrence: HR)
  Receive Date: 20250506
  Receipt Date: 20250506
  Transmission Date: 20250716
  Serious: Yes (Other)
  Sender: REGENERON
  Company Number: HR-REGENERON PHARMACEUTICALS, INC.-2025-072540

PATIENT
  Age: 53 Year
  Sex: Male

DRUGS (1)
  1. LIBTAYO [Suspect]
     Active Substance: CEMIPLIMAB-RWLC
     Indication: Squamous cell carcinoma of skin
     Dosage: 350 MG, Q3W

REACTIONS (1)
  - Immune-mediated cholangitis [Recovering/Resolving]
